FAERS Safety Report 24121550 (Version 1)
Quarter: 2024Q3

REPORT INFORMATION
  Report Type: Spontaneous
  Country: US (occurrence: US)
  Receive Date: 20240722
  Receipt Date: 20240722
  Transmission Date: 20241017
  Serious: No
  Sender: JOHNSON AND JOHNSON
  Company Number: US-VIIV HEALTHCARE LIMITED-US2024AMR085725

PATIENT
  Age: 29 Year
  Sex: Male

DRUGS (5)
  1. RILPIVIRINE [Interacting]
     Active Substance: RILPIVIRINE
     Indication: HIV infection
     Dosage: UNK UNK, MO, MONTHLY FOR 2 MONTHS, THEN EVERY OTHER MONTH THEREAFTER
     Route: 030
     Dates: start: 20221024
  2. RILPIVIRINE [Interacting]
     Active Substance: RILPIVIRINE
     Dosage: UNK UNK, Q2M, EVERY OTHER MONTH THEREAFTER
     Route: 030
     Dates: end: 20240522
  3. CABOTEGRAVIR [Suspect]
     Active Substance: CABOTEGRAVIR
     Indication: HIV infection
     Dosage: UNK UNK, MO, MONTHLY FOR 2 MONTHS, THEN EVERY OTHER MONTH THEREAFTER
     Route: 030
     Dates: start: 20221024
  4. CABOTEGRAVIR [Suspect]
     Active Substance: CABOTEGRAVIR
     Dosage: UNK UNK, Q2M, EVERY OTHER MONTH THEREAFTER
     Route: 030
     Dates: end: 20240522
  5. DESCOVY [Suspect]
     Active Substance: EMTRICITABINE\TENOFOVIR ALAFENAMIDE FUMARATE
     Indication: Product used for unknown indication
     Dosage: UNK, 200/25 MG
     Dates: start: 20240528

REACTIONS (2)
  - Pathogen resistance [Not Recovered/Not Resolved]
  - Labelled drug-drug interaction medication error [Unknown]

NARRATIVE: CASE EVENT DATE: 20240528
